FAERS Safety Report 15705604 (Version 1)
Quarter: 2018Q4

REPORT INFORMATION
  Report Type: Spontaneous
  Country: US (occurrence: US)
  Receive Date: 20181210
  Receipt Date: 20181210
  Transmission Date: 20190205
  Serious: No
  Sender: FDA-Public Use
  Company Number: None

PATIENT
  Age: 30 Year
  Sex: Female
  Weight: 55.35 kg

DRUGS (4)
  1. AIMOVIG [Suspect]
     Active Substance: ERENUMAB-AOOE
     Indication: HEADACHE
     Dosage: ?          OTHER FREQUENCY:MONTHLY;?
     Route: 058
     Dates: start: 20180820, end: 20181123
  2. AIMOVIG [Suspect]
     Active Substance: ERENUMAB-AOOE
     Indication: MIGRAINE
     Dosage: ?          OTHER FREQUENCY:MONTHLY;?
     Route: 058
     Dates: start: 20180820, end: 20181123
  3. ADVIL [Concomitant]
     Active Substance: IBUPROFEN
  4. MINIVELLE PATCH [Concomitant]

REACTIONS (13)
  - Abdominal pain upper [None]
  - Back pain [None]
  - Alopecia [None]
  - Condition aggravated [None]
  - Headache [None]
  - Amnesia [None]
  - Arthralgia [None]
  - Head discomfort [None]
  - Hemiplegic migraine [None]
  - Neck pain [None]
  - Constipation [None]
  - Fatigue [None]
  - Migraine [None]

NARRATIVE: CASE EVENT DATE: 20181113
